FAERS Safety Report 21598316 (Version 1)
Quarter: 2022Q4

REPORT INFORMATION
  Report Type: Spontaneous
  Country: CN (occurrence: None)
  Receive Date: 20221115
  Receipt Date: 20221115
  Transmission Date: 20230113
  Serious: Yes (Life-Threatening)
  Sender: FDA-Public Use
  Company Number: 2022A375081

PATIENT
  Age: 17238 Day
  Sex: Male

DRUGS (4)
  1. DAPAGLIFLOZIN [Suspect]
     Active Substance: DAPAGLIFLOZIN
     Indication: Diabetes mellitus
     Route: 048
     Dates: start: 20220919, end: 20220924
  2. INSULIN DETEMIR [Concomitant]
     Active Substance: INSULIN DETEMIR
     Indication: Diabetes mellitus
     Route: 058
  3. EUTHYROX [Concomitant]
     Active Substance: LEVOTHYROXINE SODIUM
     Route: 065
  4. FEBUXOSTAT [Concomitant]
     Active Substance: FEBUXOSTAT
     Route: 065

REACTIONS (2)
  - Hypoglycaemia [Unknown]
  - Blood creatine increased [Unknown]

NARRATIVE: CASE EVENT DATE: 20220920
